FAERS Safety Report 6985251-4 (Version None)
Quarter: 2010Q3

REPORT INFORMATION
  Report Type: 
  Country: None (occurrence: None)
  Receive Date: 20100915
  Receipt Date: 20100901
  Transmission Date: 20110219
  Serious: Yes (Hospitalization, Other)
  Sender: FDA-Public Use
  Company Number: CA-JNJFOC-20100901699

PATIENT
  Sex: Male
  Weight: 87 kg

DRUGS (11)
  1. REMICADE [Suspect]
     Indication: COLITIS ULCERATIVE
     Route: 042
  2. REMICADE [Suspect]
     Dosage: TO THE ^PRESENT^
     Route: 042
  3. ALTACE [Concomitant]
  4. METOPROLOL TARTRATE [Concomitant]
  5. FAMOTIDINE [Concomitant]
  6. CRESTOR [Concomitant]
  7. CIMETIDINE [Concomitant]
  8. VITAMIN D [Concomitant]
  9. LOVAZA [Concomitant]
  10. ASPIRIN [Concomitant]
     Route: 065
  11. WARFARIN SODIUM [Concomitant]
     Indication: ATRIAL FIBRILLATION

REACTIONS (2)
  - ATRIAL FIBRILLATION [None]
  - SUBDURAL HAEMATOMA [None]
